FAERS Safety Report 7609761-1 (Version None)
Quarter: 2011Q3

REPORT INFORMATION
  Report Type: 
  Country: None (occurrence: None)
  Receive Date: 20110714
  Receipt Date: 20110706
  Transmission Date: 20111222
  Serious: Yes (Hospitalization)
  Sender: FDA-Public Use
  Company Number: JP-ABBOTT-11P-087-0733600-00

PATIENT
  Sex: Male
  Weight: 65 kg

DRUGS (14)
  1. CINAL [Concomitant]
     Indication: PANCYTOPENIA
     Route: 048
  2. LANSOPRAZOLE [Concomitant]
     Indication: GASTROENTERITIS RADIATION
     Route: 048
     Dates: start: 20110520
  3. TRANSAMIN [Concomitant]
     Indication: PANCYTOPENIA
     Route: 048
  4. ADALAT [Concomitant]
     Indication: PRODUCT USED FOR UNKNOWN INDICATION
     Dosage: MORNING
     Route: 048
  5. LIPODOWN [Concomitant]
     Indication: PRODUCT USED FOR UNKNOWN INDICATION
     Dosage: MORNING
     Route: 048
  6. LOXONIN [Suspect]
     Indication: PYREXIA
     Dates: start: 20110521
  7. LOXONIN [Suspect]
     Indication: NASOPHARYNGITIS
     Route: 048
  8. GLAKAY [Concomitant]
     Indication: PANCYTOPENIA
     Route: 048
  9. FERROUS SULFATE TAB [Concomitant]
     Indication: PANCYTOPENIA
     Route: 048
  10. MAGNESIUM SULFATE [Concomitant]
     Indication: GASTROENTERITIS RADIATION
     Route: 048
  11. ADONA [Concomitant]
     Indication: PANCYTOPENIA
     Route: 048
  12. CLARITHROMYCIN [Suspect]
     Indication: NASOPHARYNGITIS
     Route: 048
     Dates: start: 20110422, end: 20110523
  13. EXPECTORANT [Concomitant]
     Indication: PRODUCT USED FOR UNKNOWN INDICATION
  14. BRONCHODILATOR [Concomitant]
     Indication: PRODUCT USED FOR UNKNOWN INDICATION

REACTIONS (6)
  - FATIGUE [None]
  - BLOOD CREATININE ABNORMAL [None]
  - PYREXIA [None]
  - BLOOD UREA ABNORMAL [None]
  - RENAL IMPAIRMENT [None]
  - RENAL DISORDER [None]
